FAERS Safety Report 6182143-8 (Version None)
Quarter: 2009Q2

REPORT INFORMATION
  Report Type: 
  Country: None (occurrence: None)
  Receive Date: 20090507
  Receipt Date: 20090430
  Transmission Date: 20091009
  Serious: Yes (Other)
  Sender: FDA-Public Use
  Company Number: IT-PFIZER INC-2009203471

PATIENT

DRUGS (5)
  1. NORVASC [Suspect]
     Dosage: UNK
     Dates: start: 20090403, end: 20090403
  2. MODURETIC 5-50 [Suspect]
     Dosage: UNK
     Dates: start: 20090403, end: 20090403
  3. COSOPT [Suspect]
     Dosage: 1 UNK, 1X/DAY
     Route: 047
     Dates: start: 20090403, end: 20090403
  4. NEXIUM [Concomitant]
  5. KCL-RETARD [Concomitant]

REACTIONS (3)
  - HYPOKALAEMIA [None]
  - HYPONATRAEMIA [None]
  - SYNCOPE [None]
